FAERS Safety Report 21403911 (Version 2)
Quarter: 2022Q4

REPORT INFORMATION
  Report Type: Spontaneous
  Country: IT (occurrence: IT)
  Receive Date: 20221003
  Receipt Date: 20221014
  Transmission Date: 20230113
  Serious: Yes (Other)
  Sender: FDA-Public Use
  Company Number: IT-PFIZER INC-PV202200073571

PATIENT
  Age: 69 Year
  Sex: Male

DRUGS (7)
  1. PALBOCICLIB [Suspect]
     Active Substance: PALBOCICLIB
     Indication: Breast cancer metastatic
     Dosage: 125 MG, CYCLIC ( DAILY DAYS 1-21 Q28)
     Route: 048
     Dates: start: 20210908, end: 20211102
  2. PALBOCICLIB [Suspect]
     Active Substance: PALBOCICLIB
     Dosage: 100 MG, CYCLIC (DAILY DAYS 1-21 Q28)
     Route: 048
     Dates: start: 20211223, end: 20211230
  3. LETROZOLE [Concomitant]
     Active Substance: LETROZOLE
     Indication: Breast cancer metastatic
     Dosage: 2.5 MG, DAILY
     Dates: start: 20210908
  4. LEUPROLIDE ACETATE [Concomitant]
     Active Substance: LEUPROLIDE ACETATE
     Indication: Breast cancer metastatic
     Dosage: 3.75 MG, CYCLIC ((1 VIAL EVERY 28 DAYS))
     Route: 030
     Dates: start: 20210908
  5. METHYLPREDNISOLONE [Concomitant]
     Active Substance: METHYLPREDNISOLONE
     Dosage: 8 MG AFTER LUNCH
     Dates: start: 20211109, end: 20211111
  6. METHYLPREDNISOLONE [Concomitant]
     Active Substance: METHYLPREDNISOLONE
     Dosage: 4 MG AFTER LUNCH
     Dates: start: 20211112, end: 20211117
  7. ADEMETIONINE BUTANEDISULFONATE [Concomitant]
     Active Substance: ADEMETIONINE BUTANEDISULFONATE
     Dosage: 1 DF AFTER DINNER

REACTIONS (2)
  - Hypertransaminasaemia [Recovered/Resolved]
  - Hepatic cyst [Unknown]
